FAERS Safety Report 9351241 (Version 1)
Quarter: 2013Q2

REPORT INFORMATION
  Report Type: Report from Study
  Country: US (occurrence: US)
  Receive Date: 20130617
  Receipt Date: 20130617
  Transmission Date: 20140414
  Serious: Yes (Hospitalization, Other)
  Sender: FDA-Public Use
  Company Number: US-ROCHE-1199498

PATIENT
  Age: 89 Year
  Sex: Female
  Weight: 74.91 kg

DRUGS (4)
  1. XELODA [Suspect]
     Indication: COLON CANCER
     Route: 030
     Dates: start: 201209, end: 201211
  2. XELODA [Suspect]
     Indication: COLON CANCER STAGE III
     Route: 048
     Dates: start: 20130303
  3. CORTISONE [Concomitant]
     Indication: ARTHRALGIA
     Route: 065
  4. LIDOCAINE [Concomitant]
     Indication: ARTHRALGIA
     Route: 065

REACTIONS (17)
  - Skin cancer [Unknown]
  - Diarrhoea [Recovered/Resolved]
  - Blood potassium decreased [Recovered/Resolved]
  - Nasal congestion [Not Recovered/Not Resolved]
  - Hypoaesthesia [Recovering/Resolving]
  - Paraesthesia [Recovering/Resolving]
  - Ear congestion [Not Recovered/Not Resolved]
  - Throat irritation [Not Recovered/Not Resolved]
  - Arthralgia [Recovered/Resolved]
  - Rash macular [Not Recovered/Not Resolved]
  - Skin exfoliation [Not Recovered/Not Resolved]
  - Excoriation [Not Recovered/Not Resolved]
  - Blood blister [Recovering/Resolving]
  - Erythema [Recovering/Resolving]
  - Hypoaesthesia [Recovering/Resolving]
  - Paraesthesia [Recovering/Resolving]
  - Skin exfoliation [Recovering/Resolving]
